FAERS Safety Report 9317534 (Version 1)
Quarter: 2013Q2

REPORT INFORMATION
  Report Type: Spontaneous
  Country: US (occurrence: US)
  Receive Date: 20130530
  Receipt Date: 20130530
  Transmission Date: 20140414
  Serious: No
  Sender: FDA-Public Use
  Company Number: US-GLAXOSMITHKLINE-A0972193A

PATIENT
  Age: 54 Year
  Sex: Male
  Weight: 87.7 kg

DRUGS (3)
  1. VENTOLIN [Suspect]
     Indication: COUGH
     Dosage: 2PUFF FOUR TIMES PER DAY
     Route: 055
     Dates: start: 20120328, end: 20120328
  2. TYLENOL WITH CODEINE [Concomitant]
  3. ZITHROMAX [Concomitant]

REACTIONS (5)
  - Condition aggravated [Recovered/Resolved]
  - Ill-defined disorder [Unknown]
  - Influenza [Unknown]
  - Chest discomfort [Unknown]
  - Cough [Unknown]
